FAERS Safety Report 25425517 (Version 1)
Quarter: 2025Q2

REPORT INFORMATION
  Report Type: Report from Study
  Country: US (occurrence: US)
  Receive Date: 20250611
  Receipt Date: 20250611
  Transmission Date: 20250717
  Serious: Yes (Other)
  Sender: ABBVIE
  Company Number: US-ABBVIE-6316495

PATIENT
  Age: 40 Year
  Sex: Female

DRUGS (1)
  1. HUMIRA [Suspect]
     Active Substance: ADALIMUMAB
     Indication: Product used for unknown indication
     Route: 058
     Dates: start: 20211026, end: 20220808

REACTIONS (5)
  - Hernia [Unknown]
  - Haematochezia [Recovered/Resolved]
  - Surgery [Unknown]
  - Pain [Unknown]
  - Ileostomy [Unknown]

NARRATIVE: CASE EVENT DATE: 20240601
